FAERS Safety Report 19412640 (Version 1)
Quarter: 2021Q2

REPORT INFORMATION
  Report Type: Spontaneous
  Country: CA (occurrence: CA)
  Receive Date: 20210614
  Receipt Date: 20210614
  Transmission Date: 20210717
  Serious: Yes (Hospitalization)
  Sender: FDA-Public Use
  Company Number: CA-ACCORD-228245

PATIENT
  Age: 73 Year
  Sex: Female
  Weight: 94 kg

DRUGS (8)
  1. PACLITAXEL/PACLITAXEL LIPOSOME [Suspect]
     Active Substance: PACLITAXEL
     Indication: SEROUS CYSTADENOCARCINOMA OVARY
     Dosage: LIQUID INTRAVENOUS
     Route: 042
  2. BUPROPION/BUPROPION HYDROCHLORIDE [Concomitant]
     Active Substance: BUPROPION HYDROCHLORIDE
     Dosage: EXTENDED RELEASE TABLET
  3. HYDROCHLOROTHIAZIDE /OLMESARTAN [Concomitant]
     Active Substance: HYDROCHLOROTHIAZIDE\OLMESARTAN MEDOXOMIL
  4. LOPERAMIDE [Concomitant]
     Active Substance: LOPERAMIDE
  5. NYSTATIN/NYSTATIN/LIPOSOME [Concomitant]
     Active Substance: NYSTATIN
  6. MAGNESIUM OXIDE. [Concomitant]
     Active Substance: MAGNESIUM OXIDE
  7. CARBOPLATIN. [Suspect]
     Active Substance: CARBOPLATIN
     Indication: SEROUS CYSTADENOCARCINOMA OVARY
     Dosage: SOLUTION INTRAVENOUS
     Route: 042
  8. SERTRALINE [Concomitant]
     Active Substance: SERTRALINE HYDROCHLORIDE

REACTIONS (3)
  - Urosepsis [Recovered/Resolved]
  - Febrile neutropenia [Recovered/Resolved]
  - Escherichia infection [Recovered/Resolved]
